FAERS Safety Report 8791448 (Version 1)
Quarter: 2012Q4

REPORT INFORMATION
  Report Type: Spontaneous
  Country: US (occurrence: None)
  Receive Date: 20120914
  Receipt Date: 20120914
  Transmission Date: 20130627
  Serious: Yes (Hospitalization)
  Sender: FDA-Public Use
  Company Number: None

PATIENT
  Age: 61 Year
  Sex: Male
  Weight: 106.6 kg

DRUGS (1)
  1. ROSUVASTATIN [Suspect]
     Indication: HIGH CHOLESTEROL
     Dosage: 1per day 
Saturday thru Thursday

REACTIONS (4)
  - Myalgia [None]
  - Pyrexia [None]
  - Chromaturia [None]
  - Yellow skin [None]
